FAERS Safety Report 10082440 (Version 1)
Quarter: 2014Q2

REPORT INFORMATION
  Report Type: Spontaneous
  Country: US (occurrence: None)
  Receive Date: 20140415
  Receipt Date: 20140415
  Transmission Date: 20141212
  Serious: Yes (Other)
  Sender: FDA-Public Use
  Company Number: None

PATIENT
  Age: 77 Year
  Sex: Male
  Weight: 74.84 kg

DRUGS (19)
  1. VERAPAMIL HCL SR CAPS MYLAN [Suspect]
     Indication: HYPERTENSION
     Route: 048
     Dates: start: 20131001, end: 20140105
  2. ATELVIA [Concomitant]
  3. CLARINEX [Concomitant]
  4. HYDROCHLOROTHIAZIDE [Concomitant]
  5. IPRATROPIUM BROMIDE NASAL SOLUTION [Concomitant]
  6. MASPMEX [Concomitant]
  7. PRILOSEC [Concomitant]
  8. PROAIR [Concomitant]
  9. PROSCAR [Concomitant]
  10. SINGULAIR [Concomitant]
  11. VERAPAMIL HCL SR [Concomitant]
  12. VOLTAREN [Concomitant]
  13. ZOCOR [Concomitant]
  14. ALGAE CAL [Concomitant]
  15. NEAL MED NASAL RINSE [Concomitant]
  16. ECOTRIN [Concomitant]
  17. ACIDOPHILIS [Concomitant]
  18. VITAMIN D [Concomitant]
  19. GLUCOSAMINE/CHONDROITIN HP [Concomitant]

REACTIONS (5)
  - Product substitution issue [None]
  - Product quality issue [None]
  - Adverse drug reaction [None]
  - Blood pressure inadequately controlled [None]
  - Anxiety [None]
